FAERS Safety Report 26013844 (Version 1)
Quarter: 2025Q4

REPORT INFORMATION
  Report Type: Report from Study
  Country: US (occurrence: US)
  Receive Date: 20251107
  Receipt Date: 20251107
  Transmission Date: 20260118
  Serious: Yes (Hospitalization)
  Sender: ROCHE
  Company Number: US-ROCHE-3213664

PATIENT
  Age: 52 Year
  Sex: Female

DRUGS (8)
  1. XOLAIR [Suspect]
     Active Substance: OMALIZUMAB
     Indication: Myeloproliferative neoplasm
     Dosage: INJECT 2 SYRINGES (300MG) SUBCUTANEOUSLY EVERY 4 WEEKS
     Route: 058
  2. XOLAIR [Suspect]
     Active Substance: OMALIZUMAB
     Indication: Hypotension
     Route: 058
  3. XOLAIR [Suspect]
     Active Substance: OMALIZUMAB
     Indication: Haematopoietic neoplasm
  4. XOLAIR [Suspect]
     Active Substance: OMALIZUMAB
     Indication: Anaphylactic shock
  5. XOLAIR PFS [Suspect]
     Active Substance: OMALIZUMAB
     Indication: Myeloproliferative neoplasm
     Route: 058
  6. XOLAIR PFS [Suspect]
     Active Substance: OMALIZUMAB
     Indication: Hypotension
  7. XOLAIR PFS [Suspect]
     Active Substance: OMALIZUMAB
     Indication: Haematopoietic neoplasm
  8. XOLAIR PFS [Suspect]
     Active Substance: OMALIZUMAB
     Indication: Anaphylactic shock

REACTIONS (2)
  - Off label use [Unknown]
  - Bronchitis [Recovering/Resolving]
